FAERS Safety Report 17842811 (Version 5)
Quarter: 2020Q3

REPORT INFORMATION
  Report Type: Report from Study
  Country: None (occurrence: DE)
  Receive Date: 20200530
  Receipt Date: 20200904
  Transmission Date: 20201103
  Serious: Yes (Hospitalization)
  Sender: FDA-Public Use
  Company Number: DE-ABBVIE-20K-062-3422791-00

PATIENT
  Age: 33 Year
  Sex: Female
  Weight: 123 kg

DRUGS (10)
  1. FOLIC ACID. [Concomitant]
     Active Substance: FOLIC ACID
     Indication: CROHN^S DISEASE
     Route: 048
     Dates: start: 202006
  2. NOVALGIN [Concomitant]
     Indication: PAIN
  3. DEKRISTOL [Concomitant]
     Active Substance: CHOLECALCIFEROL
     Indication: CROHN^S DISEASE
     Route: 048
     Dates: start: 202006
  4. HUMIRA [Suspect]
     Active Substance: ADALIMUMAB
     Indication: CROHN^S DISEASE
     Route: 058
     Dates: start: 20141204
  5. CORTISONE [Suspect]
     Active Substance: CORTISONE
     Indication: PRODUCT USED FOR UNKNOWN INDICATION
     Route: 065
     Dates: start: 20200521
  6. NOVALGIN [Concomitant]
     Indication: CROHN^S DISEASE
     Dates: start: 201908
  7. OMEPRAZOL [Concomitant]
     Active Substance: OMEPRAZOLE
     Indication: CROHN^S DISEASE
  8. LORANO [Concomitant]
     Indication: CROHN^S DISEASE
  9. OMEPRAZOL [Concomitant]
     Active Substance: OMEPRAZOLE
     Indication: HYPERCHLORHYDRIA
  10. LORANO [Concomitant]
     Indication: SEASONAL ALLERGY
     Dosage: 1 AS REQUIRED
     Dates: start: 2014

REACTIONS (19)
  - Ileocaecal resection [Unknown]
  - Fall [Recovered/Resolved]
  - Cold sweat [Recovered/Resolved]
  - Gastritis [Not Recovered/Not Resolved]
  - Unevaluable event [Unknown]
  - Rheumatoid arthritis [Not Recovered/Not Resolved]
  - Sleep disorder [Not Recovered/Not Resolved]
  - Mental disorder [Unknown]
  - Stress [Unknown]
  - Weight increased [Not Recovered/Not Resolved]
  - Pyrexia [Recovered/Resolved]
  - Blood glucose decreased [Recovering/Resolving]
  - Gastrointestinal inflammation [Not Recovered/Not Resolved]
  - Deficiency of bile secretion [Recovered/Resolved]
  - Hypertension [Recovered/Resolved]
  - Crohn^s disease [Recovered/Resolved]
  - Mite allergy [Not Recovered/Not Resolved]
  - Unevaluable event [Recovered/Resolved]
  - Seasonal allergy [Not Recovered/Not Resolved]

NARRATIVE: CASE EVENT DATE: 2015
